FAERS Safety Report 16181272 (Version 2)
Quarter: 2020Q2

REPORT INFORMATION
  Report Type: Spontaneous
  Country: US (occurrence: US)
  Receive Date: 20190410
  Receipt Date: 20200401
  Transmission Date: 20200713
  Serious: No
  Sender: FDA-Public Use
  Company Number: US-INCYTE CORPORATION-2019IN003494

PATIENT

DRUGS (3)
  1. JAKAFI [Suspect]
     Active Substance: RUXOLITINIB
     Indication: POLYCYTHAEMIA VERA
     Dosage: 10 MG, BID
     Route: 048
     Dates: start: 20190214
  2. JAKAFI [Suspect]
     Active Substance: RUXOLITINIB
     Dosage: 10 MG BID ON MWF AND 5 MG FOR THE REST OF THE WEEK
     Route: 048
     Dates: start: 20190525
  3. JAKAFI [Suspect]
     Active Substance: RUXOLITINIB
     Dosage: 10 MG BID ON MWF AND 5 MG FOR THE REST OF THE WEEK
     Route: 048
     Dates: start: 20190214

REACTIONS (5)
  - Depression [Unknown]
  - Stomatitis [Recovered/Resolved]
  - Gingival pain [Recovered/Resolved]
  - Nausea [Unknown]
  - Bronchitis [Unknown]
